FAERS Safety Report 15735383 (Version 1)
Quarter: 2018Q4

REPORT INFORMATION
  Report Type: Spontaneous
  Country: US (occurrence: US)
  Receive Date: 20181218
  Receipt Date: 20181218
  Transmission Date: 20190205
  Serious: Yes (Hospitalization)
  Sender: FDA-Public Use
  Company Number: None

PATIENT
  Sex: Female

DRUGS (5)
  1. VOTRIENT [Suspect]
     Active Substance: PAZOPANIB HYDROCHLORIDE
     Indication: METASTASES TO LUNG
     Route: 048
     Dates: start: 20180206
  2. ZOLOFT, ZYRTEC [Concomitant]
  3. DIAZEPAM, GLUCOPHAGE [Concomitant]
  4. LIPITOR, SYNTHROID [Concomitant]
  5. CLINDAMYCIN, CYCLOBENZAPR [Concomitant]

REACTIONS (2)
  - Therapy cessation [None]
  - Infection [None]
